FAERS Safety Report 4972161-7 (Version None)
Quarter: 2006Q2

REPORT INFORMATION
  Report Type: 
  Country: None (occurrence: None)
  Receive Date: 20060413
  Receipt Date: 20060404
  Transmission Date: 20061013
  Serious: Yes (Other)
  Sender: FDA-Public Use
  Company Number: US-BRISTOL-MYERS SQUIBB COMPANY-13336417

PATIENT
  Sex: Female

DRUGS (3)
  1. PRAVACHOL [Suspect]
  2. MEPHYTON [Concomitant]
  3. PROTONIX [Concomitant]

REACTIONS (2)
  - DRUG DISPENSING ERROR [None]
  - HEPATOCELLULAR DAMAGE [None]
